FAERS Safety Report 7741966-1 (Version None)
Quarter: 2011Q3

REPORT INFORMATION
  Report Type: 
  Country: None (occurrence: None)
  Receive Date: 20110907
  Receipt Date: 20110907
  Transmission Date: 20111222
  Serious: No
  Sender: FDA-Public Use
  Company Number: None

PATIENT
  Sex: Male
  Weight: 57.1 kg

DRUGS (4)
  1. TAXOL [Suspect]
     Dosage: 335 MG
  2. ERBITUX [Suspect]
     Dosage: 420 MG
  3. BEVACIZUMAB (RHUMAB VEGF) [Suspect]
     Dosage: 860 MG
  4. CARBOPLATIN [Suspect]
     Dosage: 580 MG

REACTIONS (2)
  - THERAPY CESSATION [None]
  - HOSPICE CARE [None]
